FAERS Safety Report 5157579-4 (Version None)
Quarter: 2006Q4

REPORT INFORMATION
  Report Type: 
  Country: None (occurrence: None)
  Receive Date: 20061127
  Receipt Date: 20061123
  Transmission Date: 20070319
  Serious: Yes (Other)
  Sender: FDA-Public Use
  Company Number: CN-GLAXOSMITHKLINE-B0448157A

PATIENT
  Age: 19 Year
  Sex: Male

DRUGS (2)
  1. LAMIVUDINE [Suspect]
     Dosage: 100MG PER DAY
     Route: 048
     Dates: start: 20050901
  2. ADEFOVIR DIPIVOXIL KIT [Concomitant]
     Indication: DRUG USE FOR UNKNOWN INDICATION
     Dosage: 100MG PER DAY
     Route: 048
     Dates: start: 20061119, end: 20061121

REACTIONS (2)
  - ALANINE AMINOTRANSFERASE INCREASED [None]
  - HBV DNA INCREASED [None]
